FAERS Safety Report 23949294 (Version 2)
Quarter: 2024Q3

REPORT INFORMATION
  Report Type: Spontaneous
  Country: US (occurrence: US)
  Receive Date: 20240607
  Receipt Date: 20240711
  Transmission Date: 20241016
  Serious: No
  Sender: SANOFI AVENTIS
  Company Number: US-SA-SAC20240605000553

PATIENT
  Age: 59 Year
  Sex: Male

DRUGS (2)
  1. DUPIXENT [Suspect]
     Active Substance: DUPILUMAB
     Indication: Waldenstrom^s macroglobulinaemia
     Dosage: UNK
     Route: 058
     Dates: start: 202404
  2. DUPIXENT [Suspect]
     Active Substance: DUPILUMAB
     Dosage: 300 MG, QOW
     Route: 058
     Dates: start: 202405

REACTIONS (6)
  - Abnormal sensation in eye [Unknown]
  - Vision blurred [Unknown]
  - Dry eye [Unknown]
  - Eye pruritus [Unknown]
  - Eye irritation [Unknown]
  - Product use in unapproved indication [Unknown]

NARRATIVE: CASE EVENT DATE: 20240101
